FAERS Safety Report 4847167-9 (Version None)
Quarter: 2005Q4

REPORT INFORMATION
  Report Type: 
  Country: None (occurrence: None)
  Receive Date: 20051206
  Receipt Date: 20051206
  Transmission Date: 20060501
  Serious: Yes (Other)
  Sender: FDA-Public Use
  Company Number: None

PATIENT
  Sex: Male
  Weight: 136.0791 kg

DRUGS (1)
  1. FUROSEMIDE [Suspect]
     Dosage: ONE DAILY
     Dates: start: 20051107

REACTIONS (4)
  - CONDITION AGGRAVATED [None]
  - OEDEMA PERIPHERAL [None]
  - PAIN IN EXTREMITY [None]
  - URINE OUTPUT DECREASED [None]
